FAERS Safety Report 9489989 (Version 1)
Quarter: 2013Q3

REPORT INFORMATION
  Report Type: Spontaneous
  Country: US (occurrence: US)
  Receive Date: 20130829
  Receipt Date: 20130829
  Transmission Date: 20140515
  Serious: Yes (Other)
  Sender: FDA-Public Use
  Company Number: US-BAYER-2013-103805

PATIENT
  Sex: Male

DRUGS (2)
  1. XOFIGO [Suspect]
     Indication: PROSTATE CANCER METASTATIC
     Dosage: 1ST INJECTION
     Route: 042
  2. XOFIGO [Suspect]
     Indication: HORMONE-REFRACTORY PROSTATE CANCER

REACTIONS (1)
  - Platelet count decreased [None]
